FAERS Safety Report 9959407 (Version 2)
Quarter: 2014Q1

REPORT INFORMATION
  Report Type: Report from Study
  Country: US (occurrence: US)
  Receive Date: 20140305
  Receipt Date: 20140305
  Transmission Date: 20141002
  Serious: No
  Sender: FDA-Public Use
  Company Number: US-ABBVIE-13P-163-1043910-00

PATIENT
  Age: 49 Year
  Sex: Female

DRUGS (13)
  1. HUMIRA [Suspect]
     Indication: COLITIS ULCERATIVE
     Dates: start: 201112, end: 201203
  2. HUMIRA [Suspect]
     Dates: start: 201203, end: 201205
  3. HUMIRA [Suspect]
     Dates: start: 201205, end: 201206
  4. HUMIRA [Suspect]
     Dates: start: 201206, end: 201301
  5. HUMIRA [Suspect]
     Dates: start: 201301
  6. HUMIRA [Suspect]
  7. MVI [Concomitant]
     Indication: PRODUCT USED FOR UNKNOWN INDICATION
     Dosage: DAILY
  8. STRONTIUM [Concomitant]
     Indication: BONE DISORDER
     Dosage: 680 MG DAILY
  9. VITAMIN D [Concomitant]
     Indication: PRODUCT USED FOR UNKNOWN INDICATION
     Dosage: 400 UNITS DAILY
  10. VITAMIN D3 [Concomitant]
     Indication: PRODUCT USED FOR UNKNOWN INDICATION
     Dosage: 400 UNITS DAILY
  11. IBUPROFEN [Concomitant]
     Indication: PRODUCT USED FOR UNKNOWN INDICATION
  12. TYLENOL [Concomitant]
     Indication: PRODUCT USED FOR UNKNOWN INDICATION
  13. MIRALAX [Concomitant]
     Indication: CONSTIPATION

REACTIONS (10)
  - Colitis ulcerative [Recovering/Resolving]
  - Nasal congestion [Recovering/Resolving]
  - Nasal discomfort [Recovering/Resolving]
  - Epistaxis [Recovering/Resolving]
  - Staphylococcal infection [Recovering/Resolving]
  - Neck pain [Unknown]
  - Eructation [Unknown]
  - Abdominal distension [Unknown]
  - Back injury [Unknown]
  - Back pain [Unknown]
